FAERS Safety Report 7344762-2 (Version None)
Quarter: 2011Q1

REPORT INFORMATION
  Report Type: 
  Country: None (occurrence: None)
  Receive Date: 20110228
  Receipt Date: 20110216
  Transmission Date: 20110831
  Serious: Yes (Other)
  Sender: FDA-Public Use
  Company Number: 027650

PATIENT
  Sex: Female
  Weight: 85 kg

DRUGS (8)
  1. ARAVA [Concomitant]
  2. DIAMICON [Concomitant]
  3. FUROSEMIDE [Concomitant]
  4. DIABECID 'I' [Concomitant]
  5. EZETROL [Concomitant]
  6. CIMZIA [Suspect]
     Indication: RHEUMATOID ARTHRITIS
     Dosage: (200 MG 1X2 WEEKS SUBCUTANEOUS)
     Route: 058
     Dates: start: 20101001
  7. ATACAND [Concomitant]
  8. LOSEC /00661201/ [Concomitant]

REACTIONS (5)
  - ARTHRALGIA [None]
  - MUSCULOSKELETAL STIFFNESS [None]
  - DRUG INEFFECTIVE [None]
  - FATIGUE [None]
  - PULMONARY MASS [None]
